FAERS Safety Report 5630044-3 (Version None)
Quarter: 2008Q1

REPORT INFORMATION
  Report Type: 
  Country: None (occurrence: None)
  Receive Date: 20080218
  Receipt Date: 20080212
  Transmission Date: 20080703
  Serious: Yes (Hospitalization)
  Sender: FDA-Public Use
  Company Number: PHNU2008DE00948

PATIENT

DRUGS (2)
  1. RITALIN LA [Suspect]
     Dosage: 20 MG, QD
     Route: 048
  2. RITALIN LA [Suspect]
     Dosage: 20 MG, QD
     Route: 048
     Dates: start: 20080201, end: 20080201

REACTIONS (4)
  - CRYING [None]
  - HEADACHE [None]
  - SLEEP DISORDER [None]
  - TONSILLECTOMY [None]
